FAERS Safety Report 13694813 (Version 5)
Quarter: 2018Q4

REPORT INFORMATION
  Report Type: Spontaneous
  Country: JP (occurrence: JP)
  Receive Date: 20170627
  Receipt Date: 20181221
  Transmission Date: 20190204
  Serious: Yes (Life-Threatening, Hospitalization, Other)
  Sender: FDA-Public Use
  Company Number: JP-PFIZER INC-2017270955

PATIENT
  Age: 47 Year
  Sex: Male

DRUGS (5)
  1. EFFEXOR [Suspect]
     Active Substance: VENLAFAXINE HYDROCHLORIDE
     Indication: ABULIA
     Dosage: 225 MG, DAILY
     Dates: end: 20170413
  2. EFFEXOR [Suspect]
     Active Substance: VENLAFAXINE HYDROCHLORIDE
     Indication: DEPRESSED MOOD
     Dosage: 75 MG, 1X/DAY
     Route: 048
     Dates: start: 20161104
  3. EFFEXOR [Suspect]
     Active Substance: VENLAFAXINE HYDROCHLORIDE
     Dosage: 75 MG, DAILY
  4. DEPAS [ETIZOLAM] [Concomitant]
     Active Substance: ETIZOLAM
  5. EFFEXOR [Suspect]
     Active Substance: VENLAFAXINE HYDROCHLORIDE
     Dosage: 150 MG, DAILY

REACTIONS (5)
  - Disease recurrence [Recovered/Resolved]
  - Device failure [Recovered/Resolved]
  - Subarachnoid haemorrhage [Recovered/Resolved]
  - Blood pressure increased [Recovered/Resolved]
  - Mania [Not Recovered/Not Resolved]

NARRATIVE: CASE EVENT DATE: 20170413
